FAERS Safety Report 18564357 (Version 1)
Quarter: 2020Q4

REPORT INFORMATION
  Report Type: Spontaneous
  Country: US (occurrence: US)
  Receive Date: 20201130
  Receipt Date: 20201130
  Transmission Date: 20210114
  Serious: Yes (Hospitalization)
  Sender: FDA-Public Use
  Company Number: None

PATIENT
  Age: 61 Year
  Sex: Male
  Weight: 81.65 kg

DRUGS (5)
  1. BAMLANIVIMAB. [Suspect]
     Active Substance: BAMLANIVIMAB
     Indication: COVID-19
     Route: 040
     Dates: start: 20201125, end: 20201125
  2. ALBUTEROL NEBULIZER [Concomitant]
     Active Substance: ALBUTEROL
     Dates: start: 20201125, end: 20201125
  3. DEXAMETHASONE. [Concomitant]
     Active Substance: DEXAMETHASONE
     Dates: start: 20201125, end: 20201128
  4. IPRATROPIUM-ALBUTEROL NEBULIZER [Concomitant]
     Dates: start: 20201125, end: 20201129
  5. LEVOFLOXACIN. [Concomitant]
     Active Substance: LEVOFLOXACIN
     Dates: start: 20201125, end: 20201130

REACTIONS (5)
  - Tachypnoea [None]
  - Oxygen saturation decreased [None]
  - Wheezing [None]
  - Dyspnoea [None]
  - Tachycardia [None]

NARRATIVE: CASE EVENT DATE: 20201125
